FAERS Safety Report 13028391 (Version 2)
Quarter: 2017Q1

REPORT INFORMATION
  Report Type: Spontaneous
  Country: BE (occurrence: BE)
  Receive Date: 20161214
  Receipt Date: 20170213
  Transmission Date: 20170428
  Serious: Yes (Death, Life-Threatening)
  Sender: FDA-Public Use
  Company Number: BE-PFIZER INC-2016574418

PATIENT
  Age: 20 Day
  Sex: Male
  Weight: 4.02 kg

DRUGS (5)
  1. DOXYCYCLINE MONOHYDRATE [Suspect]
     Active Substance: DOXYCYCLINE
     Indication: MENINGITIS NEONATAL
     Dosage: 30 MG/KG, DAILY
  2. CEFOTAXIME [Concomitant]
     Active Substance: CEFOTAXIME SODIUM
     Indication: MENINGITIS NEONATAL
     Dosage: 100 MG/KG, DAILY
  3. DIAZEPAM. [Concomitant]
     Active Substance: DIAZEPAM
     Indication: MENINGITIS
     Dosage: UNK
  4. PHENYTOIN. [Concomitant]
     Active Substance: PHENYTOIN
     Indication: MENINGITIS
     Dosage: UNK
  5. AMPICILLIN [Concomitant]
     Active Substance: AMPICILLIN
     Indication: MENINGITIS NEONATAL
     Dosage: 200 MG/KG, DAILY

REACTIONS (1)
  - Drug ineffective for unapproved indication [Fatal]
